FAERS Safety Report 5878730-4 (Version None)
Quarter: 2008Q3

REPORT INFORMATION
  Report Type: 
  Country: None (occurrence: None)
  Receive Date: 20080912
  Receipt Date: 20080901
  Transmission Date: 20090109
  Serious: Yes (Hospitalization)
  Sender: FDA-Public Use
  Company Number: DE-JNJFOC-20080801339

PATIENT
  Sex: Male
  Weight: 77 kg

DRUGS (5)
  1. TOPAMAX [Suspect]
     Indication: EPILEPSY
     Route: 048
  2. OLANZAPIN [Concomitant]
     Route: 048
  3. CETIRIZIN [Concomitant]
     Indication: HYPERSENSITIVITY
     Route: 048
  4. DOXEPIN HCL [Concomitant]
     Route: 048
  5. PANTOZOL [Concomitant]
     Indication: ABDOMINAL DISCOMFORT
     Route: 048

REACTIONS (2)
  - ACARODERMATITIS [None]
  - ECZEMA [None]
